FAERS Safety Report 5046352-3 (Version None)
Quarter: 2006Q3

REPORT INFORMATION
  Report Type: 
  Country: None (occurrence: None)
  Receive Date: 20060710
  Receipt Date: 20060217
  Transmission Date: 20061208
  Serious: Yes (Other)
  Sender: FDA-Public Use
  Company Number: PHRM2006FR00829

PATIENT
  Age: 74 Year
  Sex: Female

DRUGS (1)
  1. GLEEVEC [Suspect]
     Indication: CHRONIC MYELOID LEUKAEMIA
     Dosage: 400 MG DAILY
     Route: 048
     Dates: start: 20010101

REACTIONS (6)
  - OPTIC NEUROPATHY [None]
  - RETINAL DISORDER [None]
  - RETINAL VASCULAR DISORDER [None]
  - SCOTOMA [None]
  - VASCULAR OCCLUSION [None]
  - VISUAL ACUITY REDUCED [None]
